FAERS Safety Report 19231995 (Version 3)
Quarter: 2021Q3

REPORT INFORMATION
  Report Type: Spontaneous
  Country: US (occurrence: US)
  Receive Date: 20210507
  Receipt Date: 20210701
  Transmission Date: 20211014
  Serious: Yes (Death, Other)
  Sender: FDA-Public Use
  Company Number: US-PFIZER INC-2021243365

PATIENT
  Age: 80 Year
  Sex: Female

DRUGS (1)
  1. DETROL LA [Suspect]
     Active Substance: TOLTERODINE TARTRATE
     Indication: HYPERTONIC BLADDER
     Dosage: 4 MG, 1X/DAY
     Dates: start: 201801

REACTIONS (4)
  - Renal disorder [Unknown]
  - Death [Fatal]
  - Dementia Alzheimer^s type [Unknown]
  - Dementia [Unknown]

NARRATIVE: CASE EVENT DATE: 20210501
